FAERS Safety Report 7757091-X (Version None)
Quarter: 2011Q3

REPORT INFORMATION
  Report Type: 
  Country: None (occurrence: None)
  Receive Date: 20110916
  Receipt Date: 20110908
  Transmission Date: 20111222
  Serious: Yes (Death, Hospitalization)
  Sender: FDA-Public Use
  Company Number: NO-BRISTOL-MYERS SQUIBB COMPANY-16062689

PATIENT
  Age: 80 Year
  Sex: Female

DRUGS (7)
  1. GLUCOPHAGE [Suspect]
     Indication: DIABETES MELLITUS
     Route: 048
  2. SIMVASTATIN [Concomitant]
     Route: 048
  3. BUMETANIDE [Concomitant]
     Route: 048
  4. ACETAMINOPHEN [Concomitant]
     Route: 048
  5. ASPIRIN [Concomitant]
     Route: 048
  6. VOLTAREN [Concomitant]
     Route: 048
  7. METOPROLOL SUCCINATE [Concomitant]
     Route: 048

REACTIONS (2)
  - DEATH [None]
  - LACTIC ACIDOSIS [None]
